FAERS Safety Report 8170977-X (Version None)
Quarter: 2012Q1

REPORT INFORMATION
  Report Type: 
  Country: None (occurrence: None)
  Receive Date: 20120228
  Receipt Date: 20120222
  Transmission Date: 20120608
  Serious: Yes (Other)
  Sender: FDA-Public Use
  Company Number: BR-PFIZER INC-2012047023

PATIENT
  Age: 45 Year
  Sex: Male

DRUGS (6)
  1. ALPRAZOLAM [Concomitant]
     Indication: DEPRESSION
     Dosage: 2 MG, 1X/DAY
  2. EXODUS [Concomitant]
     Indication: DEPRESSION
     Dosage: UNK
  3. ALPRAZOLAM [Concomitant]
     Indication: SLEEP DISORDER
  4. LITHIUM CARBONATE [Concomitant]
     Indication: DEPRESSION
     Dosage: TWO TABLETS DAILY (UNSPECIFIED FREQUENCY)
  5. VARENICLINE TARTRATE [Suspect]
     Dosage: 1 MG, 2X/DAY
     Route: 048
     Dates: start: 20120201
  6. VARENICLINE TARTRATE [Suspect]
     Indication: SMOKING CESSATION THERAPY
     Dosage: UNK
     Route: 048
     Dates: start: 20120204, end: 20120201

REACTIONS (7)
  - FLUID INTAKE REDUCED [None]
  - APATHY [None]
  - GAIT DISTURBANCE [None]
  - PAIN [None]
  - DIZZINESS [None]
  - HYPERHIDROSIS [None]
  - EATING DISORDER [None]
